FAERS Safety Report 6099194-4 (Version None)
Quarter: 2009Q1

REPORT INFORMATION
  Report Type: 
  Country: None (occurrence: None)
  Receive Date: 20090303
  Receipt Date: 20090219
  Transmission Date: 20090719
  Serious: Yes (Other)
  Sender: FDA-Public Use
  Company Number: DE-RANBAXY-2009RR-22115

PATIENT
  Age: 62 Year
  Sex: Female

DRUGS (4)
  1. AMOXICILLIN [Suspect]
     Indication: HELICOBACTER GASTRITIS
     Dosage: UNK
     Dates: start: 20070501
  2. CLARITHROMYCIN [Suspect]
     Indication: HELICOBACTER GASTRITIS
     Dosage: UNK
     Dates: start: 20070501
  3. PANTOPRAZOLE [Suspect]
     Indication: HELICOBACTER GASTRITIS
     Dosage: UNK
     Dates: start: 20070501
  4. ESOMEPRAZOLE [Concomitant]

REACTIONS (1)
  - GASTRITIS [None]
